FAERS Safety Report 4451131-1 (Version None)
Quarter: 2004Q3

REPORT INFORMATION
  Report Type: 
  Country: None (occurrence: None)
  Receive Date: 20040913
  Receipt Date: 20040723
  Transmission Date: 20050211
  Serious: No
  Sender: FDA-Public Use
  Company Number: 2004-BP-06060BP

PATIENT
  Age: 78 Year
  Sex: Female

DRUGS (4)
  1. SPIRIVA [Suspect]
     Indication: CHRONIC OBSTRUCTIVE AIRWAYS DISEASE
     Dosage: 18 MCG (18 MCG); IH
     Route: 055
     Dates: start: 20031201
  2. COMBIVENT [Concomitant]
  3. ADAVAIR (SERETIDE MITE) [Concomitant]
  4. COZAAR [Concomitant]

REACTIONS (1)
  - DYSPNOEA [None]
